FAERS Safety Report 10216828 (Version 1)
Quarter: 2014Q2

REPORT INFORMATION
  Report Type: Spontaneous
  Country: US (occurrence: US)
  Receive Date: 20140604
  Receipt Date: 20140604
  Transmission Date: 20141212
  Serious: No
  Sender: FDA-Public Use
  Company Number: US-ASTRAZENECA-2014SE36129

PATIENT
  Age: 55 Year
  Sex: Female

DRUGS (6)
  1. ATENOLOL [Suspect]
     Route: 048
  2. SYMBICORT PMDI [Suspect]
     Indication: ASTHMA
     Dosage: 160/4.5 MCG, 1 PUFF BID
     Route: 055
     Dates: start: 201404
  3. LISINOPRIL [Suspect]
     Route: 048
  4. PROAIR [Concomitant]
     Indication: ASTHMA
     Route: 055
     Dates: start: 201404
  5. AZOR [Concomitant]
     Indication: BLOOD PRESSURE ABNORMAL
     Dosage: 5/20 MG UNK
     Route: 048
     Dates: start: 201404
  6. CLARITAN [Concomitant]
     Indication: SEASONAL ALLERGY
     Dosage: UNKNOWN PRN
     Route: 048
     Dates: start: 201404

REACTIONS (3)
  - Drug hypersensitivity [Not Recovered/Not Resolved]
  - Drug dose omission [Not Recovered/Not Resolved]
  - Off label use [Not Recovered/Not Resolved]
